FAERS Safety Report 4285742-3 (Version None)
Quarter: 2004Q1

REPORT INFORMATION
  Report Type: 
  Country: None (occurrence: None)
  Receive Date: 20040203
  Receipt Date: 20040203
  Transmission Date: 20041129
  Serious: Yes (Other)
  Sender: FDA-Public Use
  Company Number: None

PATIENT
  Age: 64 Year
  Sex: Female

DRUGS (5)
  1. DACARBAZINE [Suspect]
     Indication: MALIGNANT MELANOMA STAGE IV
     Dosage: 1500 MG IV Q3W
     Route: 042
     Dates: start: 20040112, end: 20040202
  2. CISPLATIN [Concomitant]
  3. VINBLASTINE [Concomitant]
  4. KYTRIL [Concomitant]
  5. DECADRON [Concomitant]

REACTIONS (1)
  - ERYTHEMA [None]
